FAERS Safety Report 16736008 (Version 2)
Quarter: 2019Q4

REPORT INFORMATION
  Report Type: Spontaneous
  Country: US (occurrence: US)
  Receive Date: 20190823
  Receipt Date: 20191017
  Transmission Date: 20200122
  Serious: No
  Sender: FDA-Public Use
  Company Number: US-PFIZER INC-2019362888

PATIENT
  Age: 50 Year
  Sex: Female
  Weight: 108 kg

DRUGS (1)
  1. ADVIL PM [Suspect]
     Active Substance: DIPHENHYDRAMINE CITRATE\IBUPROFEN
     Indication: INSOMNIA
     Dosage: 2 DF, ALTERNATE DAY (EVERY OTHER NIGHT)
     Route: 048

REACTIONS (1)
  - Therapeutic product effect incomplete [Unknown]
